FAERS Safety Report 17185406 (Version 1)
Quarter: 2019Q4

REPORT INFORMATION
  Report Type: Spontaneous
  Country: US (occurrence: US)
  Receive Date: 20191220
  Receipt Date: 20191220
  Transmission Date: 20200122
  Serious: No
  Sender: FDA-Public Use
  Company Number: US-THERAPEUTICSMD-2019TMD04676

PATIENT
  Age: 64 Year
  Sex: Female
  Weight: 55.33 kg

DRUGS (6)
  1. IMVEXXY [Suspect]
     Active Substance: ESTRADIOL
     Dosage: 10 ?G, 2X/WEEK AT BEDTIME
     Route: 067
     Dates: start: 2019, end: 20191114
  2. MULTIVITAMINS [Concomitant]
     Active Substance: VITAMINS
  3. SYNTHROID [Concomitant]
     Active Substance: LEVOTHYROXINE SODIUM
     Dosage: 88 ?G, 1X/DAY
  4. IMVEXXY [Suspect]
     Active Substance: ESTRADIOL
     Indication: DYSPAREUNIA
     Dosage: 10 ?G, 1X/DAY AT BEDTIME
     Route: 067
     Dates: start: 20191017, end: 2019
  5. VITAMIN D [Concomitant]
     Active Substance: VITAMIN D NOS
  6. CALCIUM [Concomitant]
     Active Substance: CALCIUM

REACTIONS (6)
  - Discomfort [Recovered/Resolved]
  - Unevaluable event [Recovered/Resolved]
  - Abdominal pain [Recovered/Resolved]
  - Vulvovaginal pain [Recovered/Resolved]
  - Abdominal pain upper [Recovered/Resolved]
  - Insomnia [Recovered/Resolved]

NARRATIVE: CASE EVENT DATE: 2019
